FAERS Safety Report 22649836 (Version 1)
Quarter: 2023Q2

REPORT INFORMATION
  Report Type: Report from Study
  Country: CA (occurrence: CA)
  Receive Date: 20230628
  Receipt Date: 20230628
  Transmission Date: 20230722
  Serious: Yes (Death)
  Sender: FDA-Public Use
  Company Number: CA-TEVA-2023-CA-2900979

PATIENT
  Sex: Female

DRUGS (4)
  1. OCTREOTIDE [Suspect]
     Active Substance: OCTREOTIDE
     Indication: Carcinoid tumour
     Route: 030
     Dates: start: 20220303
  2. OCTREOTIDE [Suspect]
     Active Substance: OCTREOTIDE
     Route: 030
  3. OCTREOTIDE [Suspect]
     Active Substance: OCTREOTIDE
     Route: 030
     Dates: start: 20230519
  4. Sando LAR [Concomitant]
     Indication: Product used for unknown indication

REACTIONS (1)
  - Death [Fatal]
